FAERS Safety Report 19086069 (Version 1)
Quarter: 2021Q2

REPORT INFORMATION
  Report Type: Spontaneous
  Country: TW (occurrence: TW)
  Receive Date: 20210402
  Receipt Date: 20210402
  Transmission Date: 20210717
  Serious: Yes (Other)
  Sender: FDA-Public Use
  Company Number: TW-ASTRAZENECA-2021A224649

PATIENT
  Age: 55 Year
  Sex: Female

DRUGS (6)
  1. FASLODEX [Suspect]
     Active Substance: FULVESTRANT
     Indication: BREAST CANCER FEMALE
     Route: 030
     Dates: start: 20210222, end: 20210301
  2. ALPELISIB [Concomitant]
     Active Substance: ALPELISIB
     Indication: BREAST CANCER FEMALE
     Dosage: 250.0MG UNKNOWN
     Dates: start: 20210308
  3. RIBOCICLIB. [Suspect]
     Active Substance: RIBOCICLIB
     Indication: BREAST CANCER FEMALE
     Route: 048
     Dates: start: 20190102, end: 202008
  4. ALPELISIB [Concomitant]
     Active Substance: ALPELISIB
     Indication: BREAST CANCER FEMALE
     Dosage: 300.0MG UNKNOWN
     Dates: start: 20210222, end: 20210301
  5. FASLODEX [Suspect]
     Active Substance: FULVESTRANT
     Indication: BREAST CANCER FEMALE
     Route: 030
     Dates: start: 201807, end: 202008
  6. FEMARA [Concomitant]
     Active Substance: LETROZOLE

REACTIONS (3)
  - Tumour marker increased [Unknown]
  - Blood glucose increased [Unknown]
  - Malignant neoplasm progression [Unknown]

NARRATIVE: CASE EVENT DATE: 202008
